FAERS Safety Report 20802051 (Version 1)
Quarter: 2022Q2

REPORT INFORMATION
  Report Type: Spontaneous
  Country: US (occurrence: None)
  Receive Date: 20220506
  Receipt Date: 20220506
  Transmission Date: 20220721
  Serious: No
  Sender: FDA-Public Use
  Company Number: None

PATIENT
  Sex: Male

DRUGS (1)
  1. ERLEADA [Suspect]
     Active Substance: APALUTAMIDE
     Indication: Bone cancer
     Dosage: 240MG ONCE DAILY ORAL
     Route: 048
     Dates: start: 202201

REACTIONS (7)
  - Dizziness [None]
  - Memory impairment [None]
  - Arthropathy [None]
  - Abnormal dreams [None]
  - Loss of consciousness [None]
  - Seizure [None]
  - Dyschromatopsia [None]
